FAERS Safety Report 10345253 (Version 1)
Quarter: 2014Q3

REPORT INFORMATION
  Report Type: Spontaneous
  Country: CA (occurrence: CA)
  Receive Date: 20140728
  Receipt Date: 20140728
  Transmission Date: 20150326
  Serious: Yes (Life-Threatening, Hospitalization, Disabling)
  Sender: FDA-Public Use
  Company Number: CA-NOVOPROD-416952

PATIENT
  Age: 58 Year
  Weight: 116 kg

DRUGS (1)
  1. NOVORAPID [Suspect]
     Active Substance: INSULIN ASPART
     Indication: PRODUCT USED FOR UNKNOWN INDICATION
     Dosage: UNKNOWN
     Route: 051

REACTIONS (17)
  - Memory impairment [Recovering/Resolving]
  - Musculoskeletal stiffness [Recovering/Resolving]
  - Diarrhoea [Recovering/Resolving]
  - Myalgia [Recovering/Resolving]
  - Blindness [Recovering/Resolving]
  - Deafness [Recovering/Resolving]
  - Headache [Recovering/Resolving]
  - Migraine [Recovering/Resolving]
  - Nausea [Recovering/Resolving]
  - Balance disorder [Recovering/Resolving]
  - Dyspnoea [Recovering/Resolving]
  - Confusional state [Recovering/Resolving]
  - Pyrexia [Recovering/Resolving]
  - Swollen tongue [Recovering/Resolving]
  - Vomiting [Recovering/Resolving]
  - Choking [Recovering/Resolving]
  - Constipation [Recovering/Resolving]
